FAERS Safety Report 9530814 (Version 1)
Quarter: 2013Q3

REPORT INFORMATION
  Report Type: Spontaneous
  Country: US (occurrence: US)
  Receive Date: 20130918
  Receipt Date: 20130918
  Transmission Date: 20140515
  Serious: Yes (Other)
  Sender: FDA-Public Use
  Company Number: US-BAYER-2013-109854

PATIENT
  Sex: Female
  Weight: 63 kg

DRUGS (3)
  1. BETASERON [Suspect]
     Dosage: 0.25 MG, QOD
     Route: 058
  2. AMPYRA [Concomitant]
  3. MAGNESIUM [Concomitant]

REACTIONS (1)
  - Urinary tract infection [Unknown]
